FAERS Safety Report 17449175 (Version 1)
Quarter: 2020Q1

REPORT INFORMATION
  Report Type: Report from Study
  Country: US (occurrence: US)
  Receive Date: 20200224
  Receipt Date: 20200224
  Transmission Date: 20200409
  Serious: Yes (Other)
  Sender: FDA-Public Use
  Company Number: US-ROCHE-2549073

PATIENT
  Age: 8 Week
  Sex: Male

DRUGS (1)
  1. BEVACIZUMAB. [Suspect]
     Active Substance: BEVACIZUMAB
     Indication: RETINOPATHY OF PREMATURITY
     Route: 050

REACTIONS (3)
  - Intentional product use issue [Unknown]
  - Tractional retinal detachment [Recovered/Resolved]
  - Off label use [Unknown]
